FAERS Safety Report 24048071 (Version 1)
Quarter: 2024Q3

REPORT INFORMATION
  Report Type: Report from Study
  Country: US (occurrence: US)
  Receive Date: 20240703
  Receipt Date: 20240703
  Transmission Date: 20241017
  Serious: Yes (Other)
  Sender: ABBVIE
  Company Number: US-ABBVIE-5823953

PATIENT
  Sex: Male

DRUGS (1)
  1. LINZESS [Suspect]
     Active Substance: LINACLOTIDE
     Indication: Product used for unknown indication
     Dosage: TAKE 1 CAPSULE BY MOUTH DAILY 30 MINUTES BEFORE FIRST FOOD OF THE DAY ON EMPTY STOMACH, FORM STRE...
     Route: 048

REACTIONS (1)
  - Non-Hodgkin^s lymphoma [Unknown]
